FAERS Safety Report 5408112-0 (Version None)
Quarter: 2007Q3

REPORT INFORMATION
  Report Type: 
  Country: None (occurrence: None)
  Receive Date: 20070808
  Receipt Date: 20070726
  Transmission Date: 20080115
  Serious: Yes (Hospitalization)
  Sender: FDA-Public Use
  Company Number: GB-SOLVAY-00307032184

PATIENT
  Age: 3 Month
  Sex: Male
  Weight: 4.44 kg

DRUGS (5)
  1. CREON [Suspect]
     Indication: CYSTIC FIBROSIS
     Dosage: DAILY DOSE:  UNKNOWN; AS USED: 10000 LIPASE/KG/DAY
     Route: 048
     Dates: start: 20060815, end: 20060101
  2. CREON [Suspect]
     Dosage: DAILY DOSE:  UNKNOWN; AS USED: 10000 LIPASE/KG/DAY
     Route: 048
     Dates: start: 20060101, end: 20061017
  3. DALIVIT [Concomitant]
     Indication: ILL-DEFINED DISORDER
     Dosage: DAILY DOSE:  UNKNOWN
     Route: 065
  4. VITAMIN E [Concomitant]
     Indication: ILL-DEFINED DISORDER
     Dosage: DAILY DOSE:  UNKNOWN
     Route: 065
  5. ACID BLOCKER [Concomitant]
     Indication: ILL-DEFINED DISORDER
     Dosage: DAILY DOSE:  UNKNOWN
     Route: 065

REACTIONS (3)
  - DRUG INEFFECTIVE [None]
  - MALABSORPTION [None]
  - STEATORRHOEA [None]
